FAERS Safety Report 12276284 (Version 1)
Quarter: 2016Q2

REPORT INFORMATION
  Report Type: Spontaneous
  Country: US (occurrence: US)
  Receive Date: 20160418
  Receipt Date: 20160418
  Transmission Date: 20160815
  Serious: Yes (Hospitalization, Other)
  Sender: FDA-Public Use
  Company Number: US-WATSON-2016-08154

PATIENT
  Age: 68 Year
  Sex: Male

DRUGS (3)
  1. BORTEZOMIB (UNKNOWN) [Suspect]
     Active Substance: BORTEZOMIB
     Indication: PLASMA CELL MYELOMA
     Dosage: CYCLICAL; 9 CYCLES
     Route: 065
  2. DEXAMETHASONE (WATSON LABORATORIES) [Suspect]
     Active Substance: DEXAMETHASONE
     Indication: PLASMA CELL MYELOMA
     Dosage: CYCLICAL, 9 CYCLES
     Route: 065
  3. LENALIDOMIDE [Suspect]
     Active Substance: LENALIDOMIDE
     Indication: PLASMA CELL MYELOMA
     Dosage: CYCLICAL
     Route: 065

REACTIONS (5)
  - Meningitis pneumococcal [Unknown]
  - Haematemesis [Recovered/Resolved]
  - Herpes oesophagitis [Recovered/Resolved]
  - Drug ineffective [Unknown]
  - Hiccups [Recovered/Resolved]
